FAERS Safety Report 6826219-8 (Version None)
Quarter: 2010Q3

REPORT INFORMATION
  Report Type: 
  Country: None (occurrence: None)
  Receive Date: 20100709
  Receipt Date: 20100624
  Transmission Date: 20110219
  Serious: Yes (Hospitalization)
  Sender: FDA-Public Use
  Company Number: PHHY2010FR33008

PATIENT
  Sex: Male
  Weight: 80 kg

DRUGS (4)
  1. CGP 57148B T35717+ [Suspect]
     Indication: CHRONIC MYELOID LEUKAEMIA
  2. TASIGNA [Suspect]
     Dosage: 800 MG/DAY
     Route: 048
     Dates: start: 20091026
  3. SKENAN [Concomitant]
     Dosage: 2 DF (20 MG) DAILY
  4. PREVISCAN [Concomitant]
     Dosage: 20 MG/DAY

REACTIONS (5)
  - CHILLS [None]
  - HYPERTHERMIA [None]
  - LUNG DISORDER [None]
  - PULMONARY EMBOLISM [None]
  - SEPSIS [None]
